FAERS Safety Report 16291973 (Version 2)
Quarter: 2020Q4

REPORT INFORMATION
  Report Type: Spontaneous
  Country: US (occurrence: US)
  Receive Date: 20190509
  Receipt Date: 20201028
  Transmission Date: 20210113
  Serious: Yes (Hospitalization, Other)
  Sender: FDA-Public Use
  Company Number: US-ASTRAZENECA-2019SE62212

PATIENT
  Sex: Female
  Weight: 76.2 kg

DRUGS (42)
  1. ACETAMINOPHEN. [Concomitant]
     Active Substance: ACETAMINOPHEN
  2. AMLODIPINE BESYLATE. [Concomitant]
     Active Substance: AMLODIPINE BESYLATE
  3. TYLENOL [Concomitant]
     Active Substance: ACETAMINOPHEN
     Dates: start: 2015
  4. TERAZOSIN [Concomitant]
     Active Substance: TERAZOSIN HYDROCHLORIDE
  5. SIMVASTATIN. [Concomitant]
     Active Substance: SIMVASTATIN
  6. MOMETASONE [Concomitant]
     Active Substance: MOMETASONE
  7. CEFDINIR. [Concomitant]
     Active Substance: CEFDINIR
  8. MUPIROCIN. [Concomitant]
     Active Substance: MUPIROCIN
  9. CAPSAICIN. [Concomitant]
     Active Substance: CAPSAICIN
  10. NEXIUM [Suspect]
     Active Substance: ESOMEPRAZOLE MAGNESIUM
     Indication: GASTROOESOPHAGEAL REFLUX DISEASE
     Route: 048
     Dates: start: 20060215, end: 20161206
  11. OMEPRAZOLE. [Suspect]
     Active Substance: OMEPRAZOLE
     Indication: GASTROOESOPHAGEAL REFLUX DISEASE
     Dosage: GENERIC
     Route: 065
     Dates: start: 20190219
  12. AMLODIPINE [Concomitant]
     Active Substance: AMLODIPINE BESYLATE
     Indication: HYPERTENSION
     Dates: start: 20070216, end: 20160425
  13. AMLODIPINE [Concomitant]
     Active Substance: AMLODIPINE BESYLATE
  14. TERAZOSIN [Concomitant]
     Active Substance: TERAZOSIN HYDROCHLORIDE
  15. TERAZOSIN [Concomitant]
     Active Substance: TERAZOSIN HYDROCHLORIDE
  16. LEVOTHYROXINE. [Concomitant]
     Active Substance: LEVOTHYROXINE
     Indication: HYPOTHYROIDISM
     Dates: start: 20060215, end: 20160425
  17. LISINOPRIL. [Concomitant]
     Active Substance: LISINOPRIL
     Indication: HYPERTENSION
     Dates: start: 20090219, end: 20160425
  18. LEVOTHYROXINE SODIUM. [Concomitant]
     Active Substance: LEVOTHYROXINE SODIUM
  19. ULORIC [Concomitant]
     Active Substance: FEBUXOSTAT
  20. PATANOL [Concomitant]
     Active Substance: OLOPATADINE HYDROCHLORIDE
  21. NEXIUM [Suspect]
     Active Substance: ESOMEPRAZOLE MAGNESIUM
     Indication: GASTROOESOPHAGEAL REFLUX DISEASE
     Route: 048
     Dates: start: 200604, end: 200902
  22. TRAMADOL. [Concomitant]
     Active Substance: TRAMADOL
  23. PROMETHAZINE [Concomitant]
     Active Substance: PROMETHAZINE HYDROCHLORIDE
  24. CLOBETASOL [Concomitant]
     Active Substance: CLOBETASOL
  25. PROTONIX [Suspect]
     Active Substance: PANTOPRAZOLE SODIUM
     Indication: GASTROOESOPHAGEAL REFLUX DISEASE
     Route: 065
     Dates: start: 20090219, end: 20090319
  26. VITAMIN D [Concomitant]
     Active Substance: VITAMIN D NOS
     Indication: VITAMIN D DEFICIENCY
     Dates: start: 2014
  27. CAPSAICIN. [Concomitant]
     Active Substance: CAPSAICIN
  28. HYDROCHLOROTHIAZIDE. [Concomitant]
     Active Substance: HYDROCHLOROTHIAZIDE
  29. DICLOFENAC SODIUM. [Concomitant]
     Active Substance: DICLOFENAC SODIUM
  30. NITROFURANTOIN. [Concomitant]
     Active Substance: NITROFURANTOIN
  31. AMOXICILLIN. [Concomitant]
     Active Substance: AMOXICILLIN
     Indication: INFECTION
     Dates: start: 20080501, end: 20150316
  32. METHOCARBAMOL. [Concomitant]
     Active Substance: METHOCARBAMOL
  33. AZITHROMYCIN ANHYDROUS. [Concomitant]
     Active Substance: AZITHROMYCIN ANHYDROUS
  34. TOBRAMYCIN. [Concomitant]
     Active Substance: TOBRAMYCIN
  35. ANTIPYRINE BENZOCAINE [Concomitant]
  36. VYTORIN [Concomitant]
     Active Substance: EZETIMIBE\SIMVASTATIN
  37. LISINOPRIL. [Concomitant]
     Active Substance: LISINOPRIL
  38. LEVOFLOXACIN. [Concomitant]
     Active Substance: LEVOFLOXACIN
  39. ALLOPURINOL. [Concomitant]
     Active Substance: ALLOPURINOL
  40. CYCLOBENZAPRINE. [Concomitant]
     Active Substance: CYCLOBENZAPRINE
  41. VOLTAREN [Concomitant]
     Active Substance: DICLOFENAC SODIUM
  42. DIPHENOXYLATE [Concomitant]
     Active Substance: DIPHENOXYLATE

REACTIONS (2)
  - Chronic kidney disease [Not Recovered/Not Resolved]
  - Renal failure [Unknown]
